FAERS Safety Report 13560911 (Version 4)
Quarter: 2017Q3

REPORT INFORMATION
  Report Type: Report from Study
  Country: US (occurrence: US)
  Receive Date: 20170518
  Receipt Date: 20170913
  Transmission Date: 20171127
  Serious: Yes (Other)
  Sender: FDA-Public Use
  Company Number: US-AMGEN-USASL2017066934

PATIENT
  Age: 57 Year
  Sex: Female

DRUGS (1)
  1. REPATHA [Suspect]
     Active Substance: EVOLOCUMAB
     Indication: HYPERCHOLESTEROLAEMIA
     Dosage: 140 MG, Q2WK
     Route: 065

REACTIONS (21)
  - Influenza like illness [Recovering/Resolving]
  - Weight decreased [Unknown]
  - Gingivitis [Unknown]
  - Ocular hyperaemia [Unknown]
  - Swelling [Not Recovered/Not Resolved]
  - Nausea [Recovered/Resolved]
  - Mobility decreased [Unknown]
  - Oral surgery [Unknown]
  - Decreased appetite [Not Recovered/Not Resolved]
  - Seasonal allergy [Not Recovered/Not Resolved]
  - Dizziness [Unknown]
  - Dysphonia [Not Recovered/Not Resolved]
  - Dry throat [Not Recovered/Not Resolved]
  - Procedural pain [Unknown]
  - Vision blurred [Not Recovered/Not Resolved]
  - Asthma [Not Recovered/Not Resolved]
  - Headache [Recovered/Resolved]
  - Diverticulitis [Unknown]
  - Malaise [Unknown]
  - Oropharyngeal pain [Not Recovered/Not Resolved]
  - Upper respiratory tract infection [Unknown]

NARRATIVE: CASE EVENT DATE: 201704
